FAERS Safety Report 8150513-4 (Version None)
Quarter: 2012Q1

REPORT INFORMATION
  Report Type: 
  Country: None (occurrence: None)
  Receive Date: 20120220
  Receipt Date: 20120207
  Transmission Date: 20120608
  Serious: Yes (Hospitalization)
  Sender: FDA-Public Use
  Company Number: GB-UCBSA-051086

PATIENT
  Sex: Male

DRUGS (3)
  1. LEVETIRACETAM [Concomitant]
     Indication: EPILEPSY
     Dosage: 1500 MG
     Dates: start: 20050914
  2. VIMPAT [Suspect]
     Indication: EPILEPSY
     Route: 048
     Dates: start: 20090930
  3. GABAPENTIN [Concomitant]
     Indication: EPILEPSY
     Dosage: 600 MG
     Dates: start: 20080507

REACTIONS (1)
  - CONVULSION [None]
